FAERS Safety Report 4867870-4 (Version None)
Quarter: 2005Q4

REPORT INFORMATION
  Report Type: 
  Country: None (occurrence: None)
  Receive Date: 20051228
  Receipt Date: 20050309
  Transmission Date: 20060501
  Serious: Yes (Congenital Anomaly)
  Sender: FDA-Public Use
  Company Number: GB-ABBOTT-05P-167-0293330-00

PATIENT
  Sex: Male
  Weight: 33 kg

DRUGS (1)
  1. EPILIM [Suspect]
     Indication: DRUG EXPOSURE DURING PREGNANCY

REACTIONS (27)
  - ABDOMINAL PAIN [None]
  - ABNORMAL BEHAVIOUR [None]
  - ARTHROPATHY [None]
  - CONGENITAL EYELID MALFORMATION [None]
  - CONGENITAL NAIL DISORDER [None]
  - CONGENITAL NOSE MALFORMATION [None]
  - CONGENITAL ORAL MALFORMATION [None]
  - DEVELOPMENTAL DELAY [None]
  - DYSKINESIA [None]
  - EAR MALFORMATION [None]
  - EPILEPSY [None]
  - FACIAL DYSMORPHISM [None]
  - FOETAL VALPROATE SYNDROME [None]
  - GROWTH RETARDATION [None]
  - HEADACHE [None]
  - HYPERACUSIS [None]
  - HYPERTELORISM OF ORBIT [None]
  - IMPULSIVE BEHAVIOUR [None]
  - LEARNING DISORDER [None]
  - LIGAMENT LAXITY [None]
  - LOSS OF CONSCIOUSNESS [None]
  - MENTALLY LATE DEVELOPER [None]
  - MYOPIA [None]
  - PHARYNGOLARYNGEAL PAIN [None]
  - RIB DEFORMITY [None]
  - SPEECH DISORDER DEVELOPMENTAL [None]
  - TOE DEFORMITY [None]
